FAERS Safety Report 9949406 (Version 2)
Quarter: 2014Q1

REPORT INFORMATION
  Report Type: Spontaneous
  Country: US (occurrence: US)
  Receive Date: 20140304
  Receipt Date: 20140314
  Transmission Date: 20141002
  Serious: Yes (Death)
  Sender: FDA-Public Use
  Company Number: US-AMGEN-USASP2014014042

PATIENT
  Age: 73 Year
  Sex: Female
  Weight: 69.84 kg

DRUGS (1)
  1. PROLIA [Suspect]
     Indication: OSTEOPOROSIS
     Dosage: UNK UNK, Q6MO
     Route: 065
     Dates: start: 20120314

REACTIONS (2)
  - Nephropathy [Fatal]
  - Breast cancer metastatic [Fatal]
